FAERS Safety Report 14668204 (Version 1)
Quarter: 2018Q1

REPORT INFORMATION
  Report Type: Spontaneous
  Country: CA (occurrence: CA)
  Receive Date: 20180322
  Receipt Date: 20180322
  Transmission Date: 20180509
  Serious: Yes (Disabling, Other)
  Sender: FDA-Public Use
  Company Number: CA-BAYER-2018-051574

PATIENT
  Age: 54 Year
  Sex: Female
  Weight: 124.26 kg

DRUGS (2)
  1. MIRENA [Suspect]
     Active Substance: LEVONORGESTREL
     Indication: MENORRHAGIA
     Dosage: 20 MCG/24HR, CONT
     Route: 015
  2. MIRENA [Suspect]
     Active Substance: LEVONORGESTREL
     Indication: MENORRHAGIA

REACTIONS (15)
  - Fatigue [Unknown]
  - Loss of libido [Unknown]
  - Vulvovaginal dryness [Unknown]
  - Back pain [Unknown]
  - Dizziness [Unknown]
  - Mood swings [Unknown]
  - Night sweats [Unknown]
  - Depression [Unknown]
  - Abdominal pain [Unknown]
  - Alopecia [Unknown]
  - Genito-pelvic pain/penetration disorder [Unknown]
  - Negative thoughts [Unknown]
  - Palpitations [Unknown]
  - Apathy [Unknown]
  - Pain in extremity [Unknown]
